FAERS Safety Report 25483174 (Version 1)
Quarter: 2025Q2

REPORT INFORMATION
  Report Type: Spontaneous
  Country: JP (occurrence: JP)
  Receive Date: 20250626
  Receipt Date: 20250626
  Transmission Date: 20250717
  Serious: Yes (Hospitalization, Other)
  Sender: MYLAN
  Company Number: JP-MYLANLABS-2025M1052005

PATIENT
  Age: 6 Decade
  Sex: Female

DRUGS (12)
  1. NORVASC [Suspect]
     Active Substance: AMLODIPINE BESYLATE
     Indication: Product used for unknown indication
  2. NORVASC [Suspect]
     Active Substance: AMLODIPINE BESYLATE
     Route: 048
  3. NORVASC [Suspect]
     Active Substance: AMLODIPINE BESYLATE
     Route: 048
  4. NORVASC [Suspect]
     Active Substance: AMLODIPINE BESYLATE
  5. CANDESARTAN [Suspect]
     Active Substance: CANDESARTAN
     Indication: Product used for unknown indication
  6. CANDESARTAN [Suspect]
     Active Substance: CANDESARTAN
     Route: 048
  7. CANDESARTAN [Suspect]
     Active Substance: CANDESARTAN
     Route: 048
  8. CANDESARTAN [Suspect]
     Active Substance: CANDESARTAN
  9. IMEGLIMIN [Suspect]
     Active Substance: IMEGLIMIN
     Indication: Product used for unknown indication
  10. IMEGLIMIN [Suspect]
     Active Substance: IMEGLIMIN
     Route: 048
  11. IMEGLIMIN [Suspect]
     Active Substance: IMEGLIMIN
     Route: 048
  12. IMEGLIMIN [Suspect]
     Active Substance: IMEGLIMIN

REACTIONS (4)
  - Suicide attempt [Unknown]
  - Intentional overdose [Unknown]
  - Intestinal ischaemia [Recovering/Resolving]
  - Hypotension [Recovering/Resolving]
